FAERS Safety Report 13278031 (Version 4)
Quarter: 2017Q2

REPORT INFORMATION
  Report Type: Spontaneous
  Country: US (occurrence: US)
  Receive Date: 20170228
  Receipt Date: 20170612
  Transmission Date: 20170830
  Serious: No
  Sender: FDA-Public Use
  Company Number: US-PFIZER INC-2017084400

PATIENT
  Age: 50 Year
  Sex: Female

DRUGS (4)
  1. LEFLUNOMIDE. [Suspect]
     Active Substance: LEFLUNOMIDE
     Dosage: UNK
  2. EPINEPHRINE. [Suspect]
     Active Substance: EPINEPHRINE
     Dosage: UNK
  3. VITAMIN E [Suspect]
     Active Substance: .ALPHA.-TOCOPHEROL
     Dosage: UNK
  4. ENBREL [Suspect]
     Active Substance: ETANERCEPT
     Dosage: UNK

REACTIONS (1)
  - Drug hypersensitivity [Unknown]
